FAERS Safety Report 25909144 (Version 1)
Quarter: 2025Q4

REPORT INFORMATION
  Report Type: Spontaneous
  Country: US (occurrence: US)
  Receive Date: 20251011
  Receipt Date: 20251011
  Transmission Date: 20260118
  Serious: No
  Sender: SANOFI AVENTIS
  Company Number: US-SA-2025SA301521

PATIENT
  Age: 41 Year
  Sex: Female

DRUGS (1)
  1. DUPIXENT [Suspect]
     Active Substance: DUPILUMAB
     Indication: Dermatitis atopic
     Dosage: 300 MG, QOW
     Route: 058
     Dates: start: 202209, end: 2025

REACTIONS (4)
  - Dermatitis atopic [Recovered/Resolved]
  - Blister [Recovered/Resolved]
  - Peripheral swelling [Recovered/Resolved]
  - Product dose omission issue [Recovered/Resolved]

NARRATIVE: CASE EVENT DATE: 20250101
